FAERS Safety Report 5746150-9 (Version None)
Quarter: 2008Q2

REPORT INFORMATION
  Report Type: 
  Country: None (occurrence: None)
  Receive Date: 20080520
  Receipt Date: 20080513
  Transmission Date: 20081010
  Serious: Yes (Life-Threatening)
  Sender: FDA-Public Use
  Company Number: 2008SP008977

PATIENT
  Age: 84 Year
  Sex: Male

DRUGS (1)
  1. TEMODAL [Suspect]
     Indication: GLIOBLASTOMA MULTIFORME
     Dosage: 120 MG; QD; PO
     Route: 048
     Dates: start: 20080403, end: 20080423

REACTIONS (2)
  - DIARRHOEA [None]
  - GASTROINTESTINAL DISORDER [None]
